FAERS Safety Report 8134446-5 (Version None)
Quarter: 2012Q1

REPORT INFORMATION
  Report Type: 
  Country: None (occurrence: None)
  Receive Date: 20120214
  Receipt Date: 20120214
  Transmission Date: 20120608
  Serious: Yes (Other)
  Sender: FDA-Public Use
  Company Number: None

PATIENT
  Sex: Male

DRUGS (3)
  1. TRILEPTAL [Suspect]
     Indication: BIPOLAR DISORDER
     Dosage: ONE TABLET
     Route: 048
     Dates: start: 20110922, end: 20120130
  2. SIMVASTATIN [Concomitant]
  3. ABILIFY [Concomitant]
     Dates: start: 20110923, end: 20120130

REACTIONS (4)
  - CONFUSIONAL STATE [None]
  - AGGRESSION [None]
  - FALL [None]
  - SUICIDAL IDEATION [None]
